FAERS Safety Report 11346653 (Version 2)
Quarter: 2015Q4

REPORT INFORMATION
  Report Type: Spontaneous
  Country: US (occurrence: US)
  Receive Date: 20150806
  Receipt Date: 20151215
  Transmission Date: 20160304
  Serious: No
  Sender: FDA-Public Use
  Company Number: ALCN2015US004605

PATIENT

DRUGS (1)
  1. NEO AND POLY B SULFATES + HYDROCORTISONE [Suspect]
     Active Substance: BACITRACIN\NEOMYCIN\POLYMYXIN B
     Indication: PRODUCT USED FOR UNKNOWN INDICATION
     Dosage: 1 DF, UNK
     Route: 001

REACTIONS (2)
  - Ear pruritus [Unknown]
  - Erythema [Unknown]
